FAERS Safety Report 5513351-4 (Version None)
Quarter: 2007Q4

REPORT INFORMATION
  Report Type: 
  Country: None (occurrence: None)
  Receive Date: 20071108
  Receipt Date: 20071029
  Transmission Date: 20080405
  Serious: Yes (Other)
  Sender: FDA-Public Use
  Company Number: 07H-163-0313388-00

PATIENT
  Age: 72 Year
  Sex: Female
  Weight: 70 kg

DRUGS (28)
  1. DEXMEDETOMIDINE INJECTION (DEXMEDETOMIDINE HYDROCHLORIDE INJECTION) (D [Suspect]
     Indication: SEDATION
     Dosage: 8 - 14 ML PER HR, CONTINUOUS, INTRAVENOUS
     Route: 042
     Dates: start: 20060107, end: 20060108
  2. CEFTRIAXONE [Concomitant]
  3. DIGOXIN [Concomitant]
  4. FLUTICASONE/SALMETERO (FLUTICASONE) [Concomitant]
  5. FUROSEMIDE [Concomitant]
  6. METHYLPREDNISOLONE [Concomitant]
  7. REGULAR INSULIN [Concomitant]
  8. PANTOPRAZOLE SODIUM [Concomitant]
  9. LEVOFLOXACIN [Concomitant]
  10. ALBUTEROL / IPRATROPIUM (SALBUTAMOL W / IPRATROPIUM) [Concomitant]
  11. ALBUTEROL [Concomitant]
  12. HALOPERIDOL [Concomitant]
  13. PROPOFOL [Concomitant]
  14. LORAZEPAM [Concomitant]
  15. CHLORHEXIDINE 0.12% (CHLORHEXIDINE) [Concomitant]
  16. FONDAPARINUX SODIUM [Concomitant]
  17. IPRATROPIUM BROMIDE [Concomitant]
  18. SODIUM CHLORIDE [Concomitant]
  19. D5 1/2 NS (DEXTROSE AND SODIUM CHLORIDE INJECTION) [Concomitant]
  20. POTASSIUM CHLORIDE [Concomitant]
  21. ASPIRIN [Concomitant]
  22. LANTUS [Concomitant]
  23. RAMIPRIL [Concomitant]
  24. MIDAZOLAM HCL [Concomitant]
  25. ROSUVASTATIN [Concomitant]
  26. INSULIN [Concomitant]
  27. BISACODYL (BISACODYL) [Concomitant]
  28. DOPAMINE HCL [Concomitant]

REACTIONS (4)
  - CHRONIC OBSTRUCTIVE PULMONARY DISEASE [None]
  - MYOCARDIAL INFARCTION [None]
  - PNEUMONIA [None]
  - RESPIRATORY FAILURE [None]
